FAERS Safety Report 5808939-7 (Version None)
Quarter: 2008Q3

REPORT INFORMATION
  Report Type: 
  Country: None (occurrence: None)
  Receive Date: 20080714
  Receipt Date: 20080703
  Transmission Date: 20090109
  Serious: Yes (Other)
  Sender: FDA-Public Use
  Company Number: AU-ROCHE-573861

PATIENT
  Sex: Male

DRUGS (1)
  1. DIAZEPAM [Suspect]
     Route: 065
     Dates: start: 20061204, end: 20061212

REACTIONS (1)
  - DISINHIBITION [None]
